FAERS Safety Report 6930077-0 (Version None)
Quarter: 2010Q3

REPORT INFORMATION
  Report Type: 
  Country: None (occurrence: None)
  Receive Date: 20100818
  Receipt Date: 20100809
  Transmission Date: 20110219
  Serious: Yes (Hospitalization, Other)
  Sender: FDA-Public Use
  Company Number: DE-BAYER-201021848GPV

PATIENT
  Age: 78 Year
  Sex: Male

DRUGS (5)
  1. CIPRO [Suspect]
     Indication: RENAL STONE REMOVAL
     Dates: start: 20100330, end: 20100330
  2. BUSCOPAN [Suspect]
     Indication: ABDOMINAL DISCOMFORT
     Dates: start: 20100331
  3. RAMIPRIL [Concomitant]
     Dosage: TOTAL DAILY DOSE: 10 MG
  4. PANTOPRAZOLE SODIUM [Concomitant]
     Dosage: TOTAL DAILY DOSE: 20 MG
  5. MCP [Concomitant]
     Dosage: TOTAL DAILY DOSE: 60 GTT

REACTIONS (11)
  - ABDOMINAL DISCOMFORT [None]
  - ABDOMINAL PAIN LOWER [None]
  - CHILLS [None]
  - COLITIS [None]
  - CONSTIPATION [None]
  - DIARRHOEA [None]
  - HAEMATOCHEZIA [None]
  - HAEMORRHAGIC ANAEMIA [None]
  - PERITONEAL ADHESIONS [None]
  - PERITONITIS [None]
  - VOMITING [None]
